FAERS Safety Report 25771149 (Version 1)
Quarter: 2025Q3

REPORT INFORMATION
  Report Type: Spontaneous
  Country: US (occurrence: US)
  Receive Date: 20250908
  Receipt Date: 20250908
  Transmission Date: 20251020
  Serious: No
  Sender: DOMPE FARMACEUTICI
  Company Number: US-FARMAPROD-202503-1052

PATIENT
  Age: 64 Year
  Sex: Female
  Weight: 80.74 kg

DRUGS (3)
  1. OXERVATE [Suspect]
     Active Substance: CENEGERMIN-BKBJ
     Indication: Neurotrophic keratopathy
     Route: 047
     Dates: start: 20250326
  2. PRED FORTE [Concomitant]
     Active Substance: PREDNISOLONE ACETATE
  3. XIIDRA [Concomitant]
     Active Substance: LIFITEGRAST

REACTIONS (2)
  - Headache [Unknown]
  - Asthenopia [Unknown]

NARRATIVE: CASE EVENT DATE: 20250327
